FAERS Safety Report 18602073 (Version 2)
Quarter: 2020Q4

REPORT INFORMATION
  Report Type: Spontaneous
  Country: IE (occurrence: IE)
  Receive Date: 20201210
  Receipt Date: 20201211
  Transmission Date: 20210114
  Serious: Yes (Other)
  Sender: FDA-Public Use
  Company Number: IE-ALLERGAN-2047434US

PATIENT
  Sex: Female

DRUGS (1)
  1. OZURDEX [Suspect]
     Active Substance: DEXAMETHASONE
     Indication: CYSTOID MACULAR OEDEMA
     Dosage: 0.7 MG, SINGLE
     Route: 031
     Dates: start: 202010, end: 202010

REACTIONS (4)
  - Corneal decompensation [Unknown]
  - Visual acuity reduced [Unknown]
  - Off label use [Unknown]
  - Device dislocation [Unknown]

NARRATIVE: CASE EVENT DATE: 20201202
